FAERS Safety Report 16704226 (Version 1)
Quarter: 2019Q3

REPORT INFORMATION
  Report Type: Report from Study
  Country: FR (occurrence: FR)
  Receive Date: 20190814
  Receipt Date: 20190814
  Transmission Date: 20191004
  Serious: Yes (Death, Hospitalization)
  Sender: FDA-Public Use
  Company Number: FR-REGENERON PHARMACEUTICALS, INC.-2019-47838

PATIENT

DRUGS (4)
  1. CEMIPLIMAB [Suspect]
     Active Substance: CEMIPLIMAB
     Dosage: 3 MG/KG, Q2W
     Route: 042
     Dates: start: 20190607, end: 20190607
  2. CEMIPLIMAB [Suspect]
     Active Substance: CEMIPLIMAB
     Indication: SQUAMOUS CELL CARCINOMA OF SKIN
     Dosage: 3 MG/KG, Q2W
     Route: 042
     Dates: start: 20190521, end: 20190521
  3. RAMIPRIL. [Concomitant]
     Active Substance: RAMIPRIL
     Indication: PRODUCT USED FOR UNKNOWN INDICATION
     Dosage: 1.25 MG, UNK
     Route: 065
  4. BISOPROLOL [Concomitant]
     Active Substance: BISOPROLOL
     Indication: PRODUCT USED FOR UNKNOWN INDICATION
     Dosage: 1.25 MG, UNK
     Route: 065

REACTIONS (19)
  - Back pain [Unknown]
  - Klebsiella infection [Unknown]
  - Movement disorder [Unknown]
  - Pyrexia [Unknown]
  - Respiratory failure [Fatal]
  - Blood creatine phosphokinase increased [Unknown]
  - Hypercapnic coma [Unknown]
  - Autoimmune myositis [Fatal]
  - Hepatocellular injury [Unknown]
  - Troponin increased [Unknown]
  - Dysuria [Unknown]
  - Pollakiuria [Unknown]
  - Tachypnoea [Unknown]
  - Lung disorder [Unknown]
  - Nocturia [Unknown]
  - Urinary tract infection [Unknown]
  - Musculoskeletal pain [Unknown]
  - General physical health deterioration [Unknown]
  - Sleep disorder [Unknown]

NARRATIVE: CASE EVENT DATE: 20190607
